FAERS Safety Report 8738564 (Version 2)
Quarter: 2013Q1

REPORT INFORMATION
  Report Type: Spontaneous
  Country: BR (occurrence: BR)
  Receive Date: 20120823
  Receipt Date: 20130128
  Transmission Date: 20140127
  Serious: Yes (Other)
  Sender: FDA-Public Use
  Company Number: PHHY2012BR071572

PATIENT
  Sex: Male

DRUGS (4)
  1. DIOVAN AMLO FIX [Suspect]
     Indication: HYPERTENSION
     Dosage: 0.5 DF (320/10 MG), DAILY
  2. DIOVAN AMLO FIX [Suspect]
     Dosage: 160/12.5MG, UNK
  3. HUMAN INSULIN MIX [Concomitant]
     Indication: DIABETES MELLITUS
     Dosage: 30 U, BID MORNING + NIGHT
     Route: 048
  4. THIAMINE [Concomitant]
     Indication: MEDICAL DIET
     Dosage: 1 DF, DAIILY
     Route: 048

REACTIONS (8)
  - Blindness [Not Recovered/Not Resolved]
  - Gastrooesophageal reflux disease [Not Recovered/Not Resolved]
  - Feeling abnormal [Not Recovered/Not Resolved]
  - Blood pressure increased [Recovered/Resolved]
  - Dizziness [Recovered/Resolved]
  - Wrong technique in drug usage process [Not Recovered/Not Resolved]
  - Drug dispensing error [Not Recovered/Not Resolved]
  - Drug prescribing error [Not Recovered/Not Resolved]
